FAERS Safety Report 14257621 (Version 1)
Quarter: 2017Q4

REPORT INFORMATION
  Report Type: Report from Study
  Country: None (occurrence: US)
  Receive Date: 20171207
  Receipt Date: 20171207
  Transmission Date: 20180321
  Serious: Yes (Other)
  Sender: FDA-Public Use
  Company Number: US-ABBVIE-17K-163-2102991-00

PATIENT
  Sex: Female

DRUGS (2)
  1. HUMIRA [Suspect]
     Active Substance: ADALIMUMAB
     Route: 058
     Dates: start: 201711
  2. HUMIRA [Suspect]
     Active Substance: ADALIMUMAB
     Indication: RHEUMATOID ARTHRITIS
     Route: 058
     Dates: start: 20170908, end: 20171018

REACTIONS (14)
  - Skin infection [Not Recovered/Not Resolved]
  - Injection site rash [Unknown]
  - Arthralgia [Unknown]
  - Injection site erythema [Not Recovered/Not Resolved]
  - Injection site papule [Not Recovered/Not Resolved]
  - Skin lesion [Not Recovered/Not Resolved]
  - Fatigue [Unknown]
  - Blood pressure systolic increased [Unknown]
  - Vomiting [Unknown]
  - Injection site pruritus [Not Recovered/Not Resolved]
  - Swelling [Recovering/Resolving]
  - Joint stiffness [Not Recovered/Not Resolved]
  - Peripheral swelling [Recovering/Resolving]
  - Joint swelling [Not Recovered/Not Resolved]

NARRATIVE: CASE EVENT DATE: 2017
